FAERS Safety Report 7362245-0 (Version None)
Quarter: 2011Q1

REPORT INFORMATION
  Report Type: 
  Country: None (occurrence: None)
  Receive Date: 20110318
  Receipt Date: 20110221
  Transmission Date: 20110831
  Serious: No
  Sender: FDA-Public Use
  Company Number: US-B.I. PHARMACEUTICALS,INC./RIDGEFIELD-2011-BP-06457BP

PATIENT
  Sex: Male

DRUGS (7)
  1. ASPIRIN [Concomitant]
     Route: 048
  2. SPIRALDACTONE [Concomitant]
     Dosage: 200 MG
     Route: 048
     Dates: start: 20110216
  3. LISINOPRIL [Concomitant]
     Route: 048
  4. COREG [Concomitant]
     Route: 048
  5. PRADAXA [Suspect]
     Dosage: 300 MG
     Route: 048
     Dates: start: 20110209
  6. SPIRALDACTONE [Concomitant]
     Dosage: 100 MG
     Route: 048
  7. LASIX [Concomitant]
     Route: 048
     Dates: end: 20110216

REACTIONS (4)
  - JOINT SWELLING [None]
  - RECTAL HAEMORRHAGE [None]
  - ARTHRALGIA [None]
  - RENAL PAIN [None]
